FAERS Safety Report 24978361 (Version 1)
Quarter: 2025Q1

REPORT INFORMATION
  Report Type: Spontaneous
  Country: US (occurrence: US)
  Receive Date: 20250217
  Receipt Date: 20250217
  Transmission Date: 20250408
  Serious: Yes (Other)
  Sender: AMGEN
  Company Number: US-AMGEN-USASP2025027845

PATIENT
  Age: 35 Year
  Sex: Female

DRUGS (1)
  1. BLINCYTO [Suspect]
     Active Substance: BLINATUMOMAB
     Indication: B precursor type acute leukaemia
     Route: 065

REACTIONS (5)
  - Neurotoxicity [Recovered/Resolved]
  - Agitation [Recovered/Resolved]
  - White matter lesion [Recovered/Resolved]
  - Motor dysfunction [Recovered/Resolved]
  - Disorientation [Recovered/Resolved]
